FAERS Safety Report 21464278 (Version 4)
Quarter: 2024Q1

REPORT INFORMATION
  Report Type: Spontaneous
  Country: GR (occurrence: GR)
  Receive Date: 20221017
  Receipt Date: 20240319
  Transmission Date: 20240410
  Serious: Yes (Other)
  Sender: FDA-Public Use
  Company Number: GR-BoehringerIngelheim-2022-BI-197479

PATIENT
  Age: 55 Year
  Sex: Female

DRUGS (5)
  1. SYNJARDY [Suspect]
     Active Substance: EMPAGLIFLOZIN\METFORMIN HYDROCHLORIDE
     Indication: Diabetes mellitus
     Route: 065
     Dates: start: 202209
  2. TRULICITY [Suspect]
     Active Substance: DULAGLUTIDE
     Indication: Diabetes mellitus
     Route: 058
     Dates: start: 20220509, end: 20221001
  3. TRULICITY [Suspect]
     Active Substance: DULAGLUTIDE
     Route: 058
     Dates: start: 20221002
  4. GLUCOFREE [Concomitant]
     Indication: Diabetes mellitus
     Route: 065
     Dates: start: 202209, end: 20221003
  5. DIAMICRON [Concomitant]
     Indication: Diabetes mellitus

REACTIONS (2)
  - Anaphylactic reaction [Recovering/Resolving]
  - Genital infection fungal [Recovered/Resolved]

NARRATIVE: CASE EVENT DATE: 20220901
